FAERS Safety Report 4771061-5 (Version None)
Quarter: 2005Q3

REPORT INFORMATION
  Report Type: 
  Country: None (occurrence: None)
  Receive Date: 20050915
  Receipt Date: 20050805
  Transmission Date: 20060218
  Serious: Yes (Disabling, Other)
  Sender: FDA-Public Use
  Company Number: PHFR2005GB02689

PATIENT
  Age: 61 Year
  Sex: Female
  Weight: 83 kg

DRUGS (3)
  1. ZOMETA [Suspect]
     Indication: MULTIPLE MYELOMA
     Dosage: 2 MG MONTHLY
     Dates: start: 20021106, end: 20041222
  2. THALIDOMIDE [Concomitant]
     Indication: MULTIPLE MYELOMA
     Dosage: 200MG/DAY
     Route: 048
     Dates: start: 20020821
  3. DEXAMETHASONE [Concomitant]
     Indication: MULTIPLE MYELOMA
     Dosage: 4 MG DAILY FOR 7 DAYS EACH MONTH
     Route: 048
     Dates: start: 20021106

REACTIONS (4)
  - ASEPTIC NECROSIS BONE [None]
  - BONE INFECTION [None]
  - OSTEONECROSIS [None]
  - PAIN IN JAW [None]
